FAERS Safety Report 21095173 (Version 1)
Quarter: 2022Q3

REPORT INFORMATION
  Report Type: Spontaneous
  Country: US (occurrence: None)
  Receive Date: 20220716
  Receipt Date: 20220716
  Transmission Date: 20221027
  Serious: Yes (Disabling, Other)
  Sender: FDA-Public Use
  Company Number: None

PATIENT
  Age: 40 Year
  Sex: Female
  Weight: 60.75 kg

DRUGS (8)
  1. CITROMA MAGNESIUM CITRATE [Suspect]
     Active Substance: MAGNESIUM CITRATE
     Indication: Bowel preparation
     Dosage: OTHER QUANTITY : 12 OUNCE(S);?
     Route: 048
  2. Post bariatric vit [Concomitant]
  3. BENTYL [Concomitant]
     Active Substance: DICYCLOMINE HYDROCHLORIDE
  4. GAS-X [Concomitant]
     Active Substance: DIMETHICONE
  5. immodoum [Concomitant]
  6. LATUDA [Concomitant]
     Active Substance: LURASIDONE HYDROCHLORIDE
  7. CLONAZEPAM [Concomitant]
     Active Substance: CLONAZEPAM
  8. NAPROXEN [Concomitant]
     Active Substance: NAPROXEN

REACTIONS (4)
  - Abdominal pain upper [None]
  - Abdominal distension [None]
  - Diarrhoea [None]
  - Nausea [None]

NARRATIVE: CASE EVENT DATE: 20220609
